FAERS Safety Report 20986432 (Version 1)
Quarter: 2022Q2

REPORT INFORMATION
  Report Type: Spontaneous
  Country: US (occurrence: None)
  Receive Date: 20220617
  Receipt Date: 20220617
  Transmission Date: 20220720
  Serious: No
  Sender: FDA-Public Use
  Company Number: None

PATIENT
  Age: 34 Year
  Sex: Male
  Weight: 85.8 kg

DRUGS (1)
  1. KESIMPTA [Suspect]
     Active Substance: OFATUMUMAB
     Indication: Multiple sclerosis
     Dosage: OTHER FREQUENCY : PER PACKAGE INSERT;?
     Route: 058
     Dates: start: 20220617

REACTIONS (3)
  - Chills [None]
  - Fatigue [None]
  - Body temperature increased [None]

NARRATIVE: CASE EVENT DATE: 20220617
